FAERS Safety Report 6793639-X (Version None)
Quarter: 2010Q2

REPORT INFORMATION
  Report Type: 
  Country: None (occurrence: None)
  Receive Date: 20100624
  Receipt Date: 20081226
  Transmission Date: 20101027
  Serious: No
  Sender: FDA-Public Use
  Company Number: US-PFIZER INC-2009152559

PATIENT
  Sex: Male
  Weight: 61.234 kg

DRUGS (1)
  1. GENOTROPIN [Suspect]
     Dates: start: 20050101

REACTIONS (1)
  - DRUG DOSE OMISSION [None]
